FAERS Safety Report 6473181-6 (Version None)
Quarter: 2009Q4

REPORT INFORMATION
  Report Type: 
  Country: None (occurrence: None)
  Receive Date: 20091204
  Receipt Date: 20090616
  Transmission Date: 20100525
  Serious: Yes (Death)
  Sender: FDA-Public Use
  Company Number: US-ELI_LILLY_AND_COMPANY-US200809006427

PATIENT
  Sex: Male
  Weight: 60.317 kg

DRUGS (4)
  1. HUMATROPE [Suspect]
     Indication: GROWTH HORMONE DEFICIENCY
     Dosage: 0.4 MG, UNK
     Dates: start: 20080701
  2. HUMALOG [Suspect]
     Indication: TYPE 1 DIABETES MELLITUS
  3. GLUCAGON [Suspect]
     Indication: HYPOGLYCAEMIC UNCONSCIOUSNESS
     Dosage: UNK, AS NEEDED
  4. INSULIN [Concomitant]
     Dosage: UNK, UNKNOWN

REACTIONS (13)
  - AGITATION [None]
  - DEPRESSED MOOD [None]
  - FATIGUE [None]
  - HYPERHIDROSIS [None]
  - MALAISE [None]
  - MENTAL IMPAIRMENT [None]
  - MYOCARDIAL INFARCTION [None]
  - NERVOUSNESS [None]
  - OCULAR HYPERAEMIA [None]
  - PAIN [None]
  - PERSONALITY CHANGE [None]
  - SWELLING FACE [None]
  - TREMOR [None]
